FAERS Safety Report 4849463-8 (Version None)
Quarter: 2005Q4

REPORT INFORMATION
  Report Type: 
  Country: None (occurrence: None)
  Receive Date: 20051207
  Receipt Date: 20051124
  Transmission Date: 20060501
  Serious: Yes (Hospitalization, Other)
  Sender: FDA-Public Use
  Company Number: 2005160741

PATIENT
  Sex: Male
  Weight: 3.6 kg

DRUGS (1)
  1. NEURONTIN [Suspect]
     Indication: ILL-DEFINED DISORDER
     Dosage: 2400 MG (800 MG, 3 IN 1 D)

REACTIONS (8)
  - APGAR SCORE LOW [None]
  - CONGENITAL ANOMALY [None]
  - CYANOSIS NEONATAL [None]
  - DRUG EXPOSURE DURING PREGNANCY [None]
  - FORCEPS DELIVERY [None]
  - HYPOTONIA NEONATAL [None]
  - JAW DISORDER [None]
  - NEONATAL TACHYPNOEA [None]
